FAERS Safety Report 6527551-8 (Version None)
Quarter: 2010Q1

REPORT INFORMATION
  Report Type: 
  Country: None (occurrence: None)
  Receive Date: 20100105
  Receipt Date: 20091229
  Transmission Date: 20100710
  Serious: Yes (Other)
  Sender: FDA-Public Use
  Company Number: US-JNJCH-2009033242

PATIENT
  Age: 48 Year
  Sex: Female

DRUGS (2)
  1. ROGAINE [Suspect]
     Indication: DRUG USE FOR UNKNOWN INDICATION
     Route: 061
  2. THYROID HORMONES [Concomitant]
     Indication: DRUG USE FOR UNKNOWN INDICATION
     Dosage: TEXT:UNKNOWN
     Route: 065

REACTIONS (4)
  - OEDEMA PERIPHERAL [None]
  - PAIN [None]
  - SWELLING [None]
  - TRICHORRHEXIS [None]
